FAERS Safety Report 18765792 (Version 2)
Quarter: 2021Q1

REPORT INFORMATION
  Report Type: Spontaneous
  Country: US (occurrence: US)
  Receive Date: 20210121
  Receipt Date: 20210125
  Transmission Date: 20210419
  Serious: Yes (Other)
  Sender: FDA-Public Use
  Company Number: US-VELOXIS PHARMACEUTICALS-2021VELUS-000031

PATIENT
  Age: 68 Year
  Sex: Female

DRUGS (29)
  1. DILTIAZEM. [Suspect]
     Active Substance: DILTIAZEM
     Indication: HYPERTENSION
     Dosage: UNK
     Route: 048
     Dates: start: 201901
  2. AZITHROMYCIN ANHYDROUS. [Concomitant]
     Active Substance: AZITHROMYCIN ANHYDROUS
     Indication: INFECTION PROPHYLAXIS
     Dosage: 250 MILLIGRAM, THREE TIMES WEEKLY
     Route: 048
  3. KETOCONAZOLE. [Concomitant]
     Active Substance: KETOCONAZOLE
     Indication: FUNGAL INFECTION
     Dosage: 2 PERCENT, QOD (APPLY UNDER BREASTS TO INFECTED SITE)
  4. SULFAMETHOXAZOLE;TRIMETHOPRIM [Concomitant]
     Active Substance: SULFAMETHOXAZOLE\TRIMETHOPRIM
     Indication: INFECTION PROPHYLAXIS
     Dosage: 800 MILLIGRAM THREE TIMES WEEKLY
     Route: 048
  5. VALACYCLOVIR [Concomitant]
     Active Substance: VALACYCLOVIR HYDROCHLORIDE
     Indication: HERPES SIMPLEX
     Dosage: 500 MILLIGRAM, BID
     Route: 048
  6. DILTIAZEM. [Suspect]
     Active Substance: DILTIAZEM
     Indication: TACHYCARDIA
     Dosage: 30 MILLIGRAM, Q6H
     Route: 048
  7. BUDESONIDE. [Concomitant]
     Active Substance: BUDESONIDE
     Indication: ASTHMA
     Dosage: 160 MICROGRAM, BID
     Route: 055
  8. LANSOPRAZOLE. [Concomitant]
     Active Substance: LANSOPRAZOLE
     Indication: GASTROOESOPHAGEAL REFLUX DISEASE
     Dosage: 15 MILLIGRAM BEFORE BREAKFAST
     Route: 048
  9. LIDOCAINE. [Concomitant]
     Active Substance: LIDOCAINE
     Indication: PAIN
     Dosage: 5 PERCENT, QD
  10. FAMOTIDINE. [Concomitant]
     Active Substance: FAMOTIDINE
     Indication: GASTROOESOPHAGEAL REFLUX DISEASE
     Dosage: 20 MILLIGRAM, QD
     Route: 048
  11. FENTANYL. [Concomitant]
     Active Substance: FENTANYL
     Indication: PAIN
     Dosage: 12 MICROGRAM/HOUR (1 PATCH ON SKIN EVERY 72 HOURS)
  12. GUAIFENESIN. [Concomitant]
     Active Substance: GUAIFENESIN
     Indication: COUGH
     Dosage: 600 MILLIGRAM, BID
     Route: 048
  13. ENVARSUS XR [Suspect]
     Active Substance: TACROLIMUS
     Indication: PROPHYLAXIS AGAINST TRANSPLANT REJECTION
     Dosage: UNK
  14. MYCOPHENOLATE MOFETIL. [Suspect]
     Active Substance: MYCOPHENOLATE MOFETIL
     Indication: PROPHYLAXIS AGAINST TRANSPLANT REJECTION
     Dosage: UNK
  15. FLUTICASONE. [Concomitant]
     Active Substance: FLUTICASONE
     Indication: RHINITIS ALLERGIC
     Dosage: 50 MICROGRAM, QD (2 SPRAYS)
     Route: 045
  16. IPRATROPIUM BROMIDE. [Concomitant]
     Active Substance: IPRATROPIUM BROMIDE
     Indication: RHINITIS
     Dosage: 17 MICROGRAM, BID (2 SPRAYS INTO EACH NOSTRIL)
     Route: 045
  17. SULFAMETHOXAZOLE;TRIMETHOPRIM [Concomitant]
     Active Substance: SULFAMETHOXAZOLE\TRIMETHOPRIM
     Dosage: 160 MILLIGRAM THREE TIMES WEEKLY
     Route: 048
  18. CHOLECALCIFEROL [Concomitant]
     Active Substance: CHOLECALCIFEROL
     Indication: SUPPLEMENTATION THERAPY
     Dosage: 2000 INTERNATIONAL UNIT, QD
     Route: 048
  19. MAGNESIUM GLYCINATE [Concomitant]
     Active Substance: MAGNESIUM GLYCINATE
     Indication: HYPOMAGNESAEMIA
     Dosage: 650 MILLIGRAM
     Route: 048
  20. PREDNISONE. [Suspect]
     Active Substance: PREDNISONE
     Indication: PROPHYLAXIS AGAINST TRANSPLANT REJECTION
     Dosage: UNK
  21. DILTIAZEM. [Suspect]
     Active Substance: DILTIAZEM
     Dosage: 240 MILLIGRAM, QD
     Route: 048
  22. DILTIAZEM. [Suspect]
     Active Substance: DILTIAZEM
     Dosage: 300 MILLIGRAM, QD
     Route: 048
  23. ALENDRONATE SODIUM. [Concomitant]
     Active Substance: ALENDRONATE SODIUM
     Indication: OSTEOPOROSIS
     Dosage: 70 MILLIGRAM, WEEKLY
     Route: 048
  24. ACETAMINOPHEN. [Concomitant]
     Active Substance: ACETAMINOPHEN
     Indication: PAIN
     Dosage: 325 MILLIGRAM, Q6H
     Route: 048
  25. ENVARSUS XR [Suspect]
     Active Substance: TACROLIMUS
     Dosage: 0.5 MILLIGRAM, BID
  26. CALCIUM [Concomitant]
     Active Substance: CALCIUM
     Indication: SUPPLEMENTATION THERAPY
     Dosage: 500 MG CA PLUS 700 IU VIT D
     Route: 048
  27. FLUCONAZOLE. [Suspect]
     Active Substance: FLUCONAZOLE
     Indication: CANDIDA OSTEOMYELITIS
     Dosage: 400 MILLIGRAM, QD
     Route: 048
  28. FORMOTEROL [Concomitant]
     Active Substance: FORMOTEROL
     Indication: ASTHMA
     Dosage: 4.5 MICROGRAM, BID
     Route: 055
  29. FIBER [Concomitant]
     Active Substance: PSYLLIUM HUSK
     Indication: SUPPLEMENTATION THERAPY
     Dosage: 2.5 G FIBER PLUS 500 IU VIT D
     Route: 048

REACTIONS (12)
  - Candida osteomyelitis [Unknown]
  - Hypomagnesaemia [Unknown]
  - Asthenia [Unknown]
  - Intentional product misuse [Unknown]
  - Off label use [Unknown]
  - Drug level increased [Unknown]
  - Tachycardia [Unknown]
  - Bradykinesia [Unknown]
  - Tremor [Unknown]
  - Gait disturbance [Recovered/Resolved]
  - Labelled drug-drug interaction issue [Unknown]
  - Hypertension [Unknown]

NARRATIVE: CASE EVENT DATE: 201905
